FAERS Safety Report 7967728-8 (Version None)
Quarter: 2011Q4

REPORT INFORMATION
  Report Type: 
  Country: None (occurrence: None)
  Receive Date: 20111209
  Receipt Date: 20111209
  Transmission Date: 20120403
  Serious: No
  Sender: FDA-Public Use
  Company Number: None

PATIENT

DRUGS (1)
  1. AMPHETAMINES [Suspect]
     Indication: ATTENTION DEFICIT/HYPERACTIVITY DISORDER
     Dosage: 10 MG
     Route: 048
     Dates: start: 20111128, end: 20111208

REACTIONS (4)
  - TREMOR [None]
  - DYSGEUSIA [None]
  - PRODUCT SUBSTITUTION ISSUE [None]
  - PRODUCT COUNTERFEIT [None]
